FAERS Safety Report 17794292 (Version 1)
Quarter: 2020Q2

REPORT INFORMATION
  Report Type: Spontaneous
  Country: FI (occurrence: FI)
  Receive Date: 20200515
  Receipt Date: 20200515
  Transmission Date: 20200714
  Serious: Yes (Life-Threatening)
  Sender: FDA-Public Use
  Company Number: FI-JNJFOC-20200509750

PATIENT
  Age: 76 Year
  Sex: Male

DRUGS (1)
  1. RIVAROXABAN [Suspect]
     Active Substance: RIVAROXABAN
     Indication: ANTICOAGULANT THERAPY
     Dosage: 20 MG, QD
     Route: 048
     Dates: start: 20180518, end: 20200218

REACTIONS (3)
  - Brain operation [Recovered/Resolved with Sequelae]
  - Ventricular drainage [Recovered/Resolved with Sequelae]
  - Cerebellar haemorrhage [Recovered/Resolved with Sequelae]

NARRATIVE: CASE EVENT DATE: 20200418
